FAERS Safety Report 8981151 (Version 3)
Quarter: 2013Q1

REPORT INFORMATION
  Report Type: Report from Study
  Country: US (occurrence: US)
  Receive Date: 20121221
  Receipt Date: 20130208
  Transmission Date: 20140127
  Serious: Yes (Hospitalization, Congenital Anomaly)
  Sender: FDA-Public Use
  Company Number: US-VIIV HEALTHCARE LIMITED-A1005911A

PATIENT
  Age: 1 Day
  Sex: Female
  Weight: 2.1 kg

DRUGS (6)
  1. COMBIVIR [Suspect]
     Indication: ANTIRETROVIRAL THERAPY
     Dosage: 2TAB PER DAY
     Route: 064
     Dates: start: 20120913
  2. REYATAZ [Suspect]
     Indication: ANTIRETROVIRAL THERAPY
     Dosage: 300MG PER DAY
     Route: 064
     Dates: start: 20120815, end: 20120912
  3. NORVIR [Suspect]
     Indication: ANTIRETROVIRAL THERAPY
     Dosage: 100MG PER DAY
     Route: 064
     Dates: start: 20120815, end: 20120912
  4. TRUVADA [Suspect]
     Indication: ANTIRETROVIRAL THERAPY
     Dosage: 1TAB PER DAY
     Route: 064
     Dates: start: 20120815, end: 20120912
  5. KALETRA [Suspect]
     Indication: ANTIRETROVIRAL THERAPY
     Route: 064
     Dates: start: 20120913, end: 20121114
  6. TRIMETHOPRIM + SULFAMETHOXAZOLE [Concomitant]
     Route: 064

REACTIONS (8)
  - Respiratory distress [Unknown]
  - Neonatal respiratory failure [Unknown]
  - Sepsis neonatal [Unknown]
  - Foetal chromosome abnormality [Unknown]
  - Dysmorphism [Unknown]
  - Dry skin [Unknown]
  - Premature baby [Unknown]
  - Foetal exposure during pregnancy [Unknown]
